FAERS Safety Report 22174654 (Version 1)
Quarter: 2023Q2

REPORT INFORMATION
  Report Type: Spontaneous
  Country: JP (occurrence: JP)
  Receive Date: 20230405
  Receipt Date: 20230405
  Transmission Date: 20230721
  Serious: Yes (Hospitalization, Other)
  Sender: FDA-Public Use
  Company Number: JP-TAIHO-2023-002424

PATIENT
  Age: 9 Decade
  Sex: Male

DRUGS (2)
  1. ABRAXANE [Suspect]
     Active Substance: PACLITAXEL
     Indication: Metastatic gastric cancer
     Dosage: NI
     Route: 041
  2. CYRAMZA [Concomitant]
     Active Substance: RAMUCIRUMAB
     Indication: Metastatic gastric cancer
     Dosage: NI

REACTIONS (2)
  - Enterocolitis [Recovering/Resolving]
  - Haematotoxicity [Unknown]
